FAERS Safety Report 15899833 (Version 3)
Quarter: 2019Q1

REPORT INFORMATION
  Report Type: Spontaneous
  Country: US (occurrence: US)
  Receive Date: 20190201
  Receipt Date: 20190312
  Transmission Date: 20190417
  Serious: No
  Sender: FDA-Public Use
  Company Number: US-PFIZER INC-2019048140

PATIENT

DRUGS (3)
  1. NEOSAR [Concomitant]
     Active Substance: CYCLOPHOSPHAMIDE
     Dosage: UNK
     Dates: start: 20140808, end: 20141017
  2. TAXOL [Concomitant]
     Active Substance: PACLITAXEL
     Dosage: UNK
     Dates: start: 20140808, end: 20141017
  3. DOCETAXEL. [Suspect]
     Active Substance: DOCETAXEL
     Dosage: 124 MG, CYCLIC
     Dates: start: 20140808, end: 20141017

REACTIONS (1)
  - Alopecia [Not Recovered/Not Resolved]
